FAERS Safety Report 14588112 (Version 1)
Quarter: 2018Q1

REPORT INFORMATION
  Report Type: Spontaneous
  Country: US (occurrence: US)
  Receive Date: 20180301
  Receipt Date: 20180301
  Transmission Date: 20180509
  Serious: No
  Sender: FDA-Public Use
  Company Number: None

PATIENT
  Age: 46 Year
  Sex: Female
  Weight: 75.75 kg

DRUGS (3)
  1. OMEPRAZOLE. [Suspect]
     Active Substance: OMEPRAZOLE
  2. ACIPHEX [Suspect]
     Active Substance: RABEPRAZOLE SODIUM
  3. DEXILANT [Suspect]
     Active Substance: DEXLANSOPRAZOLE

REACTIONS (1)
  - Drug ineffective [None]
